FAERS Safety Report 6754308-5 (Version None)
Quarter: 2010Q2

REPORT INFORMATION
  Report Type: 
  Country: None (occurrence: None)
  Receive Date: 20100601
  Receipt Date: 20100524
  Transmission Date: 20101027
  Serious: Yes (Other)
  Sender: FDA-Public Use
  Company Number: 2010SP028797

PATIENT
  Age: 56 Year
  Sex: Male

DRUGS (1)
  1. NOXAFIL [Suspect]
     Indication: ANTIFUNGAL PROPHYLAXIS
     Dosage: 400 MG;Q12H;PO
     Route: 048
     Dates: start: 20100212, end: 20100327

REACTIONS (4)
  - HYPERTROPHY OF TONGUE PAPILLAE [None]
  - SWOLLEN TONGUE [None]
  - TONGUE DISCOLOURATION [None]
  - TONGUE DISORDER [None]
